FAERS Safety Report 20631974 (Version 4)
Quarter: 2024Q2

REPORT INFORMATION
  Report Type: Other
  Country: DE (occurrence: None)
  Receive Date: 20220324
  Receipt Date: 20240514
  Transmission Date: 20240716
  Serious: Yes (Hospitalization)
  Sender: FDA-Public Use
  Company Number: DE-ROCHE-3056644

PATIENT
  Age: 57 Year
  Sex: Male

DRUGS (2)
  1. OCREVUS [Suspect]
     Active Substance: OCRELIZUMAB
     Indication: Relapsing-remitting multiple sclerosis
     Dosage: 600 MG 175, 215 DAYS
     Route: 042
     Dates: start: 20190624
  2. DEKRISTOL 20 000 [Concomitant]
     Dosage: 1X WEEKLY

REACTIONS (2)
  - COVID-19 [Recovered/Resolved]
  - Asthma [Not Recovered/Not Resolved]

NARRATIVE: CASE EVENT DATE: 20220215
